FAERS Safety Report 7354688-6 (Version None)
Quarter: 2011Q1

REPORT INFORMATION
  Report Type: 
  Country: None (occurrence: None)
  Receive Date: 20110316
  Receipt Date: 20110308
  Transmission Date: 20110831
  Serious: Yes (Other)
  Sender: FDA-Public Use
  Company Number: US-ELI_LILLY_AND_COMPANY-US201103002839

PATIENT
  Sex: Female

DRUGS (3)
  1. EVISTA [Suspect]
     Dates: start: 20090901, end: 20110304
  2. NEXIUM [Concomitant]
     Indication: GASTROOESOPHAGEAL REFLUX DISEASE
  3. INSULIN [Concomitant]
     Indication: DIABETES MELLITUS

REACTIONS (3)
  - PAIN IN EXTREMITY [None]
  - PAIN [None]
  - HIP ARTHROPLASTY [None]
